FAERS Safety Report 9342530 (Version 1)
Quarter: 2013Q2

REPORT INFORMATION
  Report Type: Spontaneous
  Country: ES (occurrence: ES)
  Receive Date: 20130611
  Receipt Date: 20130611
  Transmission Date: 20140414
  Serious: Yes (Hospitalization)
  Sender: FDA-Public Use
  Company Number: ES-ELI_LILLY_AND_COMPANY-ES201305009363

PATIENT
  Age: 49 Year
  Sex: Female

DRUGS (1)
  1. CYMBALTA [Suspect]
     Dosage: 60 MG, UNK
     Dates: start: 20130426

REACTIONS (3)
  - Respiratory arrest [Unknown]
  - Eye movement disorder [Unknown]
  - Contusion [Unknown]
